FAERS Safety Report 8345985-6 (Version None)
Quarter: 2012Q2

REPORT INFORMATION
  Report Type: 
  Country: None (occurrence: None)
  Receive Date: 20120509
  Receipt Date: 20120504
  Transmission Date: 20120825
  Serious: No
  Sender: FDA-Public Use
  Company Number: US-PFIZER INC-2012110581

PATIENT
  Sex: Female
  Weight: 113 kg

DRUGS (7)
  1. CRESTOR [Concomitant]
     Indication: BLOOD CHOLESTEROL ABNORMAL
     Dosage: 10 MG, 1X/DAY
  2. VALACICLOVIR [Concomitant]
     Indication: BONE MARROW TRANSPLANT
     Dosage: 500 MG, DAILY ON MONDAY, WEDNESDAY, FRIDAY
  3. BENICAR [Concomitant]
     Indication: HYPERTENSION
     Dosage: 20 MG, 1X/DAY
  4. GENOTROPIN [Suspect]
     Indication: HYPOPITUITARISM
     Dosage: 0.6 MG, 1X/DAY
     Dates: start: 20110101
  5. GENOTROPIN [Suspect]
     Indication: ASTHENIA
     Dosage: 1.2 MG, 1X/DAY
     Dates: end: 20110101
  6. AMLODIPINE [Concomitant]
     Indication: HYPERTENSION
     Dosage: 5 MG, 1X/DAY
  7. INSULIN [Concomitant]
     Indication: DIABETES MELLITUS
     Dosage: UNK

REACTIONS (3)
  - HYPOAESTHESIA [None]
  - PAIN IN EXTREMITY [None]
  - INSOMNIA [None]
